FAERS Safety Report 14391155 (Version 1)
Quarter: 2018Q1

REPORT INFORMATION
  Report Type: Spontaneous
  Country: US (occurrence: US)
  Receive Date: 20180112
  Receipt Date: 20180112
  Transmission Date: 20180509
  Serious: No
  Sender: FDA-Public Use
  Company Number: None

PATIENT
  Age: 83 Year
  Sex: Male

DRUGS (1)
  1. XTANDI [Suspect]
     Active Substance: ENZALUTAMIDE
     Indication: PROSTATE CANCER
     Dosage: 4X40MG ONCE DAILY ORAL
     Route: 048
     Dates: start: 20171114, end: 20180109

REACTIONS (2)
  - Drug ineffective [None]
  - Disease progression [None]

NARRATIVE: CASE EVENT DATE: 20180105
